FAERS Safety Report 11926079 (Version 2)
Quarter: 2016Q1

REPORT INFORMATION
  Report Type: Report from Study
  Country: US (occurrence: US)
  Receive Date: 20160119
  Receipt Date: 20160208
  Transmission Date: 20160526
  Serious: Yes (Other)
  Sender: FDA-Public Use
  Company Number: US-ROCHE-1693571

PATIENT
  Age: 17 Year
  Sex: Female
  Weight: 51.3 kg

DRUGS (9)
  1. NASACORT [Concomitant]
     Active Substance: TRIAMCINOLONE ACETONIDE
     Indication: MULTIPLE ALLERGIES
     Dosage: 2 SQUIRTS IN EACH NOSTRIL DAILY SINCE 2008/2009
     Route: 045
  2. SYMBICORT [Concomitant]
     Active Substance: BUDESONIDE\FORMOTEROL FUMARATE DIHYDRATE
     Indication: MULTIPLE ALLERGIES
  3. OMEPRAZOLE. [Concomitant]
     Active Substance: OMEPRAZOLE
     Route: 048
     Dates: start: 2011
  4. NASACORT [Concomitant]
     Active Substance: TRIAMCINOLONE ACETONIDE
     Indication: ASTHMA
  5. ZYRTEC [Concomitant]
     Active Substance: CETIRIZINE HYDROCHLORIDE
     Indication: ASTHMA
     Dosage: TAKING SINCE 3 YEARS OLD
     Route: 048
  6. MEDROL [Concomitant]
     Active Substance: METHYLPREDNISOLONE
     Indication: ANAPHYLACTIC REACTION
     Dosage: STARTED AFTER LAST ANAPHYLACTIC REACTION
     Route: 048
  7. XOLAIR [Suspect]
     Active Substance: OMALIZUMAB
     Indication: ASTHMA
     Dosage: 3 INJECTION EVERY 2 WEEKS
     Route: 058
     Dates: start: 201508
  8. SYMBICORT [Concomitant]
     Active Substance: BUDESONIDE\FORMOTEROL FUMARATE DIHYDRATE
     Indication: ASTHMA
     Dosage: TAKING SINCE 2011
     Route: 055
  9. ZYRTEC [Concomitant]
     Active Substance: CETIRIZINE HYDROCHLORIDE
     Indication: MULTIPLE ALLERGIES

REACTIONS (16)
  - Angina pectoris [Not Recovered/Not Resolved]
  - Fatigue [Recovered/Resolved]
  - Back pain [Unknown]
  - Asthma [Recovered/Resolved with Sequelae]
  - Hemiparesis [Unknown]
  - Hypoaesthesia [Unknown]
  - Fatigue [Recovered/Resolved with Sequelae]
  - Food allergy [Not Recovered/Not Resolved]
  - Anaphylactic reaction [Recovered/Resolved with Sequelae]
  - Pain [Unknown]
  - Blood immunoglobulin E increased [Recovered/Resolved]
  - Headache [Recovered/Resolved]
  - Anaphylactic shock [Unknown]
  - Back pain [Recovered/Resolved]
  - Chest pain [Not Recovered/Not Resolved]
  - Headache [Unknown]

NARRATIVE: CASE EVENT DATE: 201509
